FAERS Safety Report 7598095-X (Version None)
Quarter: 2011Q3

REPORT INFORMATION
  Report Type: 
  Country: None (occurrence: None)
  Receive Date: 20110708
  Receipt Date: 20110627
  Transmission Date: 20111222
  Serious: Yes (Other)
  Sender: FDA-Public Use
  Company Number: FR-VERTEX PHARMACEUTICALS INC.-AE-2011-000404

PATIENT
  Sex: Male

DRUGS (9)
  1. PEGASYS [Concomitant]
     Indication: HEPATITIS C
     Route: 058
     Dates: start: 20110221
  2. ESIDRIX [Concomitant]
     Indication: HYPERTENSION
     Dates: start: 20100901
  3. POTASSIUM CHLORIDE [Concomitant]
     Indication: BLOOD POTASSIUM DECREASED
     Dates: start: 20110321
  4. FLUINDIONE [Concomitant]
     Indication: PORTAL VEIN THROMBOSIS
     Dates: start: 20080901
  5. MOTILYO [Concomitant]
     Indication: NAUSEA
     Route: 048
     Dates: start: 20110321
  6. TOCO [Concomitant]
     Indication: INSULIN RESISTANCE
     Dates: start: 20100906
  7. VX-950 [Suspect]
     Indication: HEPATITIS C
     Route: 048
     Dates: start: 20110221, end: 20110515
  8. FOLIC ACID [Concomitant]
     Indication: ANAEMIA
     Dates: start: 20100901
  9. COPEGUS [Concomitant]
     Indication: HEPATITIS C
     Route: 048
     Dates: start: 20110221

REACTIONS (1)
  - ASTHENIA [None]
